FAERS Safety Report 16517450 (Version 3)
Quarter: 2019Q3

REPORT INFORMATION
  Report Type: Report from Study
  Country: CO (occurrence: CO)
  Receive Date: 20190702
  Receipt Date: 20190821
  Transmission Date: 20191004
  Serious: Yes (Hospitalization, Other)
  Sender: FDA-Public Use
  Company Number: CO-ASTELLAS-2019US026915

PATIENT
  Age: 31 Year
  Sex: Female
  Weight: 46 kg

DRUGS (5)
  1. MYCOPHENOLATE [Concomitant]
     Active Substance: MYCOPHENOLIC ACID
     Indication: RENAL IMPAIRMENT
     Dosage: 1080 MG, ONCE DAILY (3 CAPSULES OF 360 MG)
     Route: 048
  2. TACROLIMUS. [Suspect]
     Active Substance: TACROLIMUS
     Indication: RENAL TRANSPLANT
     Dosage: 15 MG, ONCE DAILY (3 CAPSULES OF 5MG)
     Route: 048
     Dates: start: 20181026, end: 20190620
  3. PREDNISOLONE. [Concomitant]
     Active Substance: PREDNISOLONE
     Route: 048
     Dates: start: 20190605
  4. PREDNISOLONE. [Concomitant]
     Active Substance: PREDNISOLONE
     Indication: RENAL IMPAIRMENT
     Route: 048
     Dates: start: 2018, end: 20190604
  5. TACROLIMUS. [Suspect]
     Active Substance: TACROLIMUS
     Dosage: 13 MG, ONCE DAILY (2 CAPSULES OF 5MG AND 3 CAPSULES OF 1MG)
     Route: 048
     Dates: start: 20190621

REACTIONS (2)
  - Glomerulosclerosis [Not Recovered/Not Resolved]
  - Proteinuria [Recovering/Resolving]

NARRATIVE: CASE EVENT DATE: 20190604
